FAERS Safety Report 7678030-6 (Version None)
Quarter: 2011Q3

REPORT INFORMATION
  Report Type: 
  Country: None (occurrence: None)
  Receive Date: 20110811
  Receipt Date: 20110801
  Transmission Date: 20111222
  Serious: Yes (Life-Threatening, Hospitalization)
  Sender: FDA-Public Use
  Company Number: FR-GLAXOSMITHKLINE-B0736217A

PATIENT
  Sex: Female

DRUGS (6)
  1. MABTHERA [Suspect]
     Indication: B-CELL LYMPHOMA
     Route: 042
     Dates: start: 20060101, end: 20091001
  2. ALKERAN [Suspect]
     Indication: BONE MARROW TRANSPLANT
     Route: 042
     Dates: start: 20081129, end: 20081204
  3. BICNU [Suspect]
     Indication: BONE MARROW TRANSPLANT
     Route: 042
     Dates: start: 20081129, end: 20081204
  4. CYTARABINE [Suspect]
     Indication: BONE MARROW TRANSPLANT
     Route: 042
     Dates: start: 20081129, end: 20081204
  5. ETOPOSIDE [Suspect]
     Indication: BONE MARROW TRANSPLANT
     Route: 065
     Dates: start: 20081129, end: 20081204
  6. ZEVALIN [Suspect]
     Indication: BONE MARROW TRANSPLANT
     Route: 042
     Dates: start: 20081121, end: 20081121

REACTIONS (5)
  - PROGRESSIVE MULTIFOCAL LEUKOENCEPHALOPATHY [None]
  - APHASIA [None]
  - MOTOR DYSFUNCTION [None]
  - DYSARTHRIA [None]
  - MOVEMENT DISORDER [None]
